FAERS Safety Report 5705078-0 (Version None)
Quarter: 2008Q2

REPORT INFORMATION
  Report Type: 
  Country: None (occurrence: None)
  Receive Date: 20080410
  Receipt Date: 20080325
  Transmission Date: 20081010
  Serious: No
  Sender: FDA-Public Use
  Company Number: 002#2#2008-00139

PATIENT
  Age: 85 Year
  Sex: Male
  Weight: 74.8435 kg

DRUGS (3)
  1. NEUPRO [Suspect]
     Indication: PARKINSON'S DISEASE
     Dosage: 6MG/24H,1 IN 1 D,TRANSDERMAL; 2MG/24H,1 IN 1 D,TRANSDERMAL; 4MG/24H,1 IN 1 D,TRANSDERMAL
     Route: 062
     Dates: start: 20070701, end: 20070101
  2. NEUPRO [Suspect]
     Indication: PARKINSON'S DISEASE
     Dosage: 6MG/24H,1 IN 1 D,TRANSDERMAL; 2MG/24H,1 IN 1 D,TRANSDERMAL; 4MG/24H,1 IN 1 D,TRANSDERMAL
     Route: 062
     Dates: start: 20070701, end: 20070101
  3. NEUPRO [Suspect]
     Indication: PARKINSON'S DISEASE
     Dosage: 6MG/24H,1 IN 1 D,TRANSDERMAL; 2MG/24H,1 IN 1 D,TRANSDERMAL; 4MG/24H,1 IN 1 D,TRANSDERMAL
     Route: 062
     Dates: start: 20070701

REACTIONS (2)
  - DRUG INEFFECTIVE [None]
  - PHARMACEUTICAL PRODUCT COMPLAINT [None]
